FAERS Safety Report 11374644 (Version 1)
Quarter: 2015Q3

REPORT INFORMATION
  Report Type: Spontaneous
  Country: DE (occurrence: DE)
  Receive Date: 20150813
  Receipt Date: 20150813
  Transmission Date: 20151125
  Serious: Yes (Other)
  Sender: FDA-Public Use
  Company Number: DE-SUN PHARMACEUTICAL INDUSTRIES LTD-2015RR-101429

PATIENT

DRUGS (8)
  1. CITALOPRAM [Suspect]
     Active Substance: CITALOPRAM HYDROBROMIDE
     Indication: DEPRESSION
     Dosage: 40 MG, QD, PROBABLY LONGER, DURING GW 0-17.1
     Route: 064
     Dates: start: 20140406, end: 20140804
  2. SALOFALK [Concomitant]
     Active Substance: MESALAMINE
     Indication: CROHN^S DISEASE
     Dosage: 3000 MG, QD, DURING GW 0-32.6
     Route: 064
     Dates: start: 20140406, end: 20141122
  3. FOLSAURE [Concomitant]
     Active Substance: FOLIC ACID
     Indication: VITAMIN SUPPLEMENTATION
     Dosage: 2ND TRIMESTER
     Route: 064
  4. TRUXAL [Suspect]
     Active Substance: CHLORPROTHIXENE
     Indication: DEPRESSION
     Dosage: 50 MG, DAILY, PROBABLY LONGER, IF REQUIRED, DURING GESTATIONAL WEEK 0-16.6
     Route: 064
     Dates: start: 20140406, end: 20140802
  5. VENLAFAXINE [Suspect]
     Active Substance: VENLAFAXINE HYDROCHLORIDE
     Indication: DEPRESSION
     Dosage: 225 MG, QD, PROBABLY LONGER, DURING THE 1ST TRIMESTER
     Route: 064
     Dates: start: 20140406, end: 20140806
  6. SEROQUEL [Suspect]
     Active Substance: QUETIAPINE FUMARATE
     Indication: DEPRESSION
     Dosage: 400 MG, QD, DRUING GW 0-17.3
     Route: 064
     Dates: start: 20140406, end: 20140806
  7. TAVOR [Suspect]
     Active Substance: LORAZEPAM
     Indication: DEPRESSION
     Dosage: 1 MG, DAILY, PROBABLY LONGER, DOSAGE BETWEEN 1 AND 0.5MG/DAY, DURING GW 0-32.6
     Route: 064
  8. ATOSIL [Suspect]
     Active Substance: PROMETHAZINE HYDROCHLORIDE
     Indication: DEPRESSION
     Dosage: 2ND + 3RD TRIMESTER
     Route: 064

REACTIONS (7)
  - Maternal drugs affecting foetus [None]
  - Hypotonia neonatal [Recovered/Resolved]
  - Floppy infant [Recovered/Resolved]
  - Premature rupture of membranes [None]
  - Premature baby [None]
  - Respiratory disorder neonatal [Recovered/Resolved]
  - Caesarean section [None]

NARRATIVE: CASE EVENT DATE: 20141122
